FAERS Safety Report 26069731 (Version 1)
Quarter: 2025Q4

REPORT INFORMATION
  Report Type: Spontaneous
  Country: US (occurrence: US)
  Receive Date: 20251120
  Receipt Date: 20251120
  Transmission Date: 20260118
  Serious: No
  Sender: GLAND PHARMA LTD
  Company Number: US-GLANDPHARMA-US-2025GLNSPO02030

PATIENT

DRUGS (4)
  1. ENOXAPARIN SODIUM [Suspect]
     Active Substance: ENOXAPARIN SODIUM
     Indication: Deep vein thrombosis
     Route: 065
     Dates: start: 2025
  2. ENOXAPARIN SODIUM [Suspect]
     Active Substance: ENOXAPARIN SODIUM
     Indication: Pulmonary embolism
  3. WARFARIN [Suspect]
     Active Substance: WARFARIN
     Indication: Deep vein thrombosis
     Route: 065
     Dates: start: 2025
  4. WARFARIN [Suspect]
     Active Substance: WARFARIN
     Indication: Pulmonary embolism

REACTIONS (4)
  - Swelling [Unknown]
  - Skin discolouration [Unknown]
  - Contusion [Unknown]
  - Pain of skin [Unknown]

NARRATIVE: CASE EVENT DATE: 20250101
